FAERS Safety Report 8139564-3 (Version None)
Quarter: 2012Q1

REPORT INFORMATION
  Report Type: 
  Country: None (occurrence: None)
  Receive Date: 20120215
  Receipt Date: 20120201
  Transmission Date: 20120608
  Serious: Yes (Other)
  Sender: FDA-Public Use
  Company Number: CHPA2012US002349

PATIENT
  Sex: Female

DRUGS (1)
  1. ACETAM/DIPHEN CITRATE [Suspect]
     Indication: HEADACHE
     Dosage: UNK, UNK

REACTIONS (8)
  - ABDOMINAL PAIN [None]
  - DIARRHOEA [None]
  - FATIGUE [None]
  - DYSARTHRIA [None]
  - NAUSEA [None]
  - MALAISE [None]
  - VISION BLURRED [None]
  - DIZZINESS [None]
